FAERS Safety Report 6381925-7 (Version None)
Quarter: 2009Q3

REPORT INFORMATION
  Report Type: 
  Country: None (occurrence: None)
  Receive Date: 20090930
  Receipt Date: 20090918
  Transmission Date: 20100115
  Serious: Yes (Other)
  Sender: FDA-Public Use
  Company Number: US-ROCHE-657818

PATIENT
  Sex: Female

DRUGS (4)
  1. PEGASYS [Suspect]
     Indication: HEPATITIS C
     Dosage: FORM: PRE-FILLED SYRINGE
     Route: 065
     Dates: start: 20090827
  2. RIBAVIRIN [Suspect]
     Indication: HEPATITIS C
     Dosage: DIVIDED DOSES
     Route: 065
     Dates: start: 20090827
  3. XANAX [Concomitant]
  4. VISTARIL [Concomitant]

REACTIONS (5)
  - AGORAPHOBIA [None]
  - DEPRESSION [None]
  - HYPERTHYROIDISM [None]
  - SOCIAL PHOBIA [None]
  - SUICIDAL IDEATION [None]
